FAERS Safety Report 19389919 (Version 1)
Quarter: 2021Q2

REPORT INFORMATION
  Report Type: Spontaneous
  Country: FR (occurrence: FR)
  Receive Date: 20210608
  Receipt Date: 20210608
  Transmission Date: 20210717
  Serious: Yes (Other)
  Sender: FDA-Public Use
  Company Number: FR-HBP-2019FR022186

PATIENT
  Age: 55 Year
  Sex: Male

DRUGS (1)
  1. LEDAGA [Suspect]
     Active Substance: MECHLORETHAMINE HYDROCHLORIDE
     Indication: CUTANEOUS T-CELL LYMPHOMA
     Dosage: UNK, UNKNOWN
     Route: 003
     Dates: start: 201702

REACTIONS (2)
  - Myalgia [Recovered/Resolved]
  - Hyperhidrosis [Recovered/Resolved]

NARRATIVE: CASE EVENT DATE: 201807
